FAERS Safety Report 21139714 (Version 1)
Quarter: 2022Q3

REPORT INFORMATION
  Report Type: Spontaneous
  Country: US (occurrence: None)
  Receive Date: 20220727
  Receipt Date: 20220727
  Transmission Date: 20221027
  Serious: No
  Sender: FDA-Public Use
  Company Number: 2022A265916

PATIENT
  Age: 14929 Day
  Sex: Female
  Weight: 72.6 kg

DRUGS (4)
  1. BUDESONIDE\FORMOTEROL\GLYCOPYRRONIUM [Suspect]
     Active Substance: BUDESONIDE\FORMOTEROL\GLYCOPYRRONIUM
     Indication: Asthma
     Dosage: 2 PUFFS TWICE A DAY
     Route: 055
  2. FLUNISOLIDE [Concomitant]
     Active Substance: FLUNISOLIDE
     Route: 045
  3. SERTRALINE [Concomitant]
     Active Substance: SERTRALINE HYDROCHLORIDE
  4. UNSPECIFIED INGREDIENT [Concomitant]
     Active Substance: UNSPECIFIED INGREDIENT

REACTIONS (9)
  - Feeling abnormal [Unknown]
  - Chest discomfort [Unknown]
  - Throat tightness [Unknown]
  - Pain in extremity [Unknown]
  - Pain [Unknown]
  - Extra dose administered [Unknown]
  - Drug dose omission by device [Unknown]
  - Product dose omission issue [Unknown]
  - Device issue [Unknown]

NARRATIVE: CASE EVENT DATE: 20220722
